FAERS Safety Report 7469715-5 (Version None)
Quarter: 2011Q2

REPORT INFORMATION
  Report Type: 
  Country: None (occurrence: None)
  Receive Date: 20110510
  Receipt Date: 20110504
  Transmission Date: 20111010
  Serious: Yes (Death, Hospitalization)
  Sender: FDA-Public Use
  Company Number: AT-BRISTOL-MYERS SQUIBB COMPANY-15178965

PATIENT
  Age: 68 Year
  Sex: Male
  Weight: 60 kg

DRUGS (10)
  1. ASPIRIN [Concomitant]
     Dosage: FILM COATED TABS, AT NOON.
  2. FLUOROURACIL [Suspect]
     Indication: HEAD AND NECK CANCER
     Dosage: INFUSION FROM DAY 1 TO DAY 4 OF CYCLE(1000MG/M2) RECENT DOSE-18JUN2010
     Route: 042
     Dates: start: 20100329, end: 20100618
  3. CISPLATIN [Suspect]
     Indication: HEAD AND NECK CANCER
     Route: 042
     Dates: start: 20100329, end: 20100329
  4. ERBITUX [Suspect]
     Indication: HEAD AND NECK CANCER
     Dosage: STRENGTH-5MG/ML; RECENT DOSE ON 28JUN2010.
     Route: 042
     Dates: start: 20100329, end: 20100628
  5. CARBOPLATIN [Suspect]
     Indication: HEAD AND NECK CANCER
     Dosage: 3RD INF + RECENT DOSE: 14JUN2010. 1DF=5 AUC
     Route: 042
     Dates: start: 20100426, end: 20100614
  6. VOLTAREN [Concomitant]
     Dosage: DISPERS SOLUBLE TABS, MORNING AND EVENING.
  7. ARANESP [Concomitant]
     Dosage: SOLU FOR INJ IN PREFILLED SYRINGE;
  8. CONCOR [Concomitant]
     Dosage: CONCOR COR FILM COATED TABS, MORNING AND EVENING.
  9. NEXIUM [Concomitant]
     Dosage: TABS
  10. ZOLPIDEM TARTRATE [Concomitant]
     Dosage: FILM COATED TABS, AT NIGHT.

REACTIONS (3)
  - STAPHYLOCOCCAL BACTERAEMIA [None]
  - PNEUMONIA [None]
  - FEBRILE NEUTROPENIA [None]
